FAERS Safety Report 8902996 (Version 1)
Quarter: 2012Q4

REPORT INFORMATION
  Report Type: 
  Country: US (occurrence: US)
  Receive Date: 20121112
  Receipt Date: 20121112
  Transmission Date: 20130627
  Serious: Yes (Hospitalization)
  Sender: FDA-Public Use
  Company Number: US-ELI_LILLY_AND_COMPANY-US201211000311

PATIENT
  Age: 69 Year
  Sex: Female

DRUGS (6)
  1. PROZAC [Suspect]
     Indication: DEPRESSION
     Dosage: 40 mg, qd
     Dates: end: 201209
  2. SIMVASTATIN [Concomitant]
     Dosage: 1 DF, unknown
  3. LISINOPRIL [Concomitant]
     Dosage: 1 DF, unknown
  4. ASPIRIN [Concomitant]
     Dosage: 81 mg, qd
  5. LEVOTHYROXINE [Concomitant]
     Dosage: 1 DF, unknown
  6. AMLODIPINE [Concomitant]
     Dosage: 5 mg, qd

REACTIONS (2)
  - Amnesia [Unknown]
  - Drug withdrawal syndrome [Unknown]
